FAERS Safety Report 10178701 (Version 1)
Quarter: 2014Q2

REPORT INFORMATION
  Report Type: Spontaneous
  Country: US (occurrence: None)
  Receive Date: 20140515
  Receipt Date: 20140515
  Transmission Date: 20141212
  Serious: Yes (Hospitalization)
  Sender: FDA-Public Use
  Company Number: AXC-2014-000102

PATIENT
  Sex: Female

DRUGS (5)
  1. BENTYL [Suspect]
     Indication: NAUSEA
  2. BENTYL [Suspect]
     Indication: ABDOMINAL DISCOMFORT
  3. ACTEMRA (TOCLIZUMAB) [Concomitant]
  4. PROTONIX (PANTOPRAZOLE SODIUM SESQUIHYDRATE) [Concomitant]
  5. FOLIC ACID (FOLIC ACID) [Concomitant]

REACTIONS (7)
  - Pancreatitis relapsing [None]
  - Drug hypersensitivity [None]
  - Condition aggravated [None]
  - Diarrhoea [None]
  - Abdominal pain [None]
  - Off label use [None]
  - Respiratory tract infection [None]
